FAERS Safety Report 11400944 (Version 1)
Quarter: 2015Q3

REPORT INFORMATION
  Report Type: Spontaneous
  Country: DE (occurrence: DE)
  Receive Date: 20150820
  Receipt Date: 20150820
  Transmission Date: 20151125
  Serious: Yes (Other)
  Sender: FDA-Public Use
  Company Number: DE-JNJFOC-20150517735

PATIENT
  Age: 66 Year
  Sex: Male
  Weight: 65 kg

DRUGS (13)
  1. DOXORUBICIN [Suspect]
     Active Substance: DOXORUBICIN
     Indication: CHEMOTHERAPY
     Route: 042
     Dates: start: 20150303
  2. VINCRISTIN [Suspect]
     Active Substance: VINCRISTINE
     Indication: CHEMOTHERAPY
     Dosage: TIME INTERVAL BETWEEN LAST DOSE OF DRUG AND START OF REACTION: 10 DAYS
     Route: 042
     Dates: start: 20150318, end: 20150318
  3. CYCLOPHOSPHAMIDE. [Suspect]
     Active Substance: CYCLOPHOSPHAMIDE
     Indication: CHEMOTHERAPY
     Route: 042
     Dates: start: 20150217
  4. RITUXIMAB [Suspect]
     Active Substance: RITUXIMAB
     Indication: CHEMOTHERAPY
     Dosage: TIME INTERVAL : 11 DAYS BETWEEN LAST DOSE OF DRUG AND START OF REACTION
     Route: 042
     Dates: start: 20150317, end: 20150317
  5. VINCRISTIN [Suspect]
     Active Substance: VINCRISTINE
     Indication: CHEMOTHERAPY
     Route: 042
     Dates: start: 20150217
  6. CYCLOPHOSPHAMIDE. [Suspect]
     Active Substance: CYCLOPHOSPHAMIDE
     Indication: CHEMOTHERAPY
     Route: 042
     Dates: start: 20150303
  7. PREDNISON [Suspect]
     Active Substance: PREDNISONE
     Indication: CHEMOTHERAPY
     Dosage: TIME INTERVAL : 6 DAYS BETWEEN LAST DOSE OF DRUG AND START OF REACTION
     Route: 048
     Dates: start: 20150318, end: 20150322
  8. DOXORUBICIN [Suspect]
     Active Substance: DOXORUBICIN
     Indication: CHEMOTHERAPY
     Route: 042
     Dates: start: 20150217
  9. CYCLOPHOSPHAMIDE. [Suspect]
     Active Substance: CYCLOPHOSPHAMIDE
     Indication: CHEMOTHERAPY
     Dosage: TIME INTERVAL : 10 DAYS BETWEEN LAST DOSE OF DRUG AND START OF REACTION
     Route: 042
     Dates: start: 20150318, end: 20150318
  10. RITUXIMAB [Suspect]
     Active Substance: RITUXIMAB
     Indication: CHEMOTHERAPY
     Route: 042
     Dates: start: 20150216
  11. DOXORUBICIN [Suspect]
     Active Substance: DOXORUBICIN
     Indication: CHEMOTHERAPY
     Dosage: TIME INTERVAL BETWEEN LAST DOSE OF DRUG AND START OF REACTION: 10 DAYS
     Route: 042
     Dates: start: 20150318, end: 20150318
  12. VINCRISTIN [Suspect]
     Active Substance: VINCRISTINE
     Indication: CHEMOTHERAPY
     Route: 042
     Dates: start: 20150303
  13. CYCLOPHOSPHAMIDE. [Suspect]
     Active Substance: CYCLOPHOSPHAMIDE
     Indication: CHEMOTHERAPY
     Route: 042
     Dates: start: 201501

REACTIONS (3)
  - Drug-induced liver injury [Not Recovered/Not Resolved]
  - Alopecia [Unknown]
  - Liver disorder [Unknown]

NARRATIVE: CASE EVENT DATE: 20150327
